FAERS Safety Report 5121716-8 (Version None)
Quarter: 2006Q4

REPORT INFORMATION
  Report Type: 
  Country: None (occurrence: None)
  Receive Date: 20061006
  Receipt Date: 20060929
  Transmission Date: 20070319
  Serious: Yes (Other)
  Sender: FDA-Public Use
  Company Number: TR-AVENTIS-200620216GDDC

PATIENT
  Age: 19 Year
  Sex: Female

DRUGS (8)
  1. RIFAMPICIN [Suspect]
     Indication: TUBERCULOSIS
  2. RIFAMPICIN [Suspect]
     Indication: PERITONEAL TUBERCULOSIS
  3. ISONIAZID [Suspect]
     Indication: TUBERCULOSIS
  4. ISONIAZID [Suspect]
     Indication: PERITONEAL TUBERCULOSIS
  5. ETHAMBUTOL HYDROCHLORIDE [Suspect]
     Indication: TUBERCULOSIS
  6. ETHAMBUTOL HYDROCHLORIDE [Suspect]
     Indication: PERITONEAL TUBERCULOSIS
  7. PYRAZINAMIDE [Suspect]
     Indication: TUBERCULOSIS
  8. PYRAZINAMIDE [Suspect]
     Indication: PERITONEAL TUBERCULOSIS

REACTIONS (6)
  - HEPATIC ENCEPHALOPATHY [None]
  - HEPATIC FAILURE [None]
  - HEPATIC NECROSIS [None]
  - LIVER TRANSPLANT [None]
  - LOSS OF CONSCIOUSNESS [None]
  - UNRESPONSIVE TO STIMULI [None]
